FAERS Safety Report 19605348 (Version 1)
Quarter: 2021Q3

REPORT INFORMATION
  Report Type: Spontaneous
  Country: CA (occurrence: CA)
  Receive Date: 20210724
  Receipt Date: 20210724
  Transmission Date: 20211014
  Serious: Yes (Life-Threatening, Hospitalization)
  Sender: FDA-Public Use
  Company Number: CA-TEVA-2021-CA-1934355

PATIENT
  Age: 4 Year
  Sex: Male
  Weight: 20 kg

DRUGS (10)
  1. LEUCOVORIN. [Concomitant]
     Active Substance: LEUCOVORIN
  2. MAGIC MOUTHWASH(NYSTATIN) [Concomitant]
  3. METHOTREXATE. [Suspect]
     Active Substance: METHOTREXATE
     Indication: LEUKAEMIA RECURRENT
     Route: 042
  4. CYTARABINE INJECTION [Concomitant]
     Active Substance: CYTARABINE
  5. SODIUM BICARBONATE. [Concomitant]
     Active Substance: SODIUM BICARBONATE
  6. ASPARAGINASE(ERWINIA) [Concomitant]
  7. HYDROCORTISONE. [Concomitant]
     Active Substance: HYDROCORTISONE
  8. CASPOFUNGIN [Concomitant]
     Active Substance: CASPOFUNGIN
  9. LEVOFLOXACIN. [Concomitant]
     Active Substance: LEVOFLOXACIN
  10. SPRYCEL [Concomitant]
     Active Substance: DASATINIB

REACTIONS (1)
  - Mucosal inflammation [Recovering/Resolving]
